FAERS Safety Report 9015884 (Version 4)
Quarter: 2013Q2

REPORT INFORMATION
  Report Type: Report from Study
  Country: CA (occurrence: CA)
  Receive Date: 20130116
  Receipt Date: 20130613
  Transmission Date: 20140414
  Serious: Yes (Other)
  Sender: FDA-Public Use
  Company Number: CA-ROCHE-1178503

PATIENT
  Age: 59 Year
  Sex: Male
  Weight: 136.1 kg

DRUGS (6)
  1. XELODA [Suspect]
     Indication: COLORECTAL CANCER
     Route: 048
     Dates: start: 20121210
  2. XELODA [Suspect]
     Route: 048
     Dates: start: 201301
  3. XELODA [Suspect]
     Route: 048
     Dates: start: 2013
  4. XELODA [Suspect]
     Route: 048
     Dates: start: 20130423
  5. SYMBICORT [Concomitant]
  6. NASONEX [Concomitant]

REACTIONS (17)
  - Haemoptysis [Unknown]
  - Bronchitis [Unknown]
  - Bronchospasm [Unknown]
  - Pain in extremity [Not Recovered/Not Resolved]
  - Nasopharyngitis [Not Recovered/Not Resolved]
  - Dyspnoea [Not Recovered/Not Resolved]
  - Dry skin [Not Recovered/Not Resolved]
  - Chills [Not Recovered/Not Resolved]
  - Malaise [Not Recovered/Not Resolved]
  - Blister [Not Recovered/Not Resolved]
  - Pain in extremity [Recovering/Resolving]
  - Limb discomfort [Unknown]
  - Pain in extremity [Not Recovered/Not Resolved]
  - Dry skin [Not Recovered/Not Resolved]
  - Lethargy [Not Recovered/Not Resolved]
  - Change of bowel habit [Not Recovered/Not Resolved]
  - Rash [Recovered/Resolved]
